FAERS Safety Report 7603087-8 (Version None)
Quarter: 2011Q3

REPORT INFORMATION
  Report Type: 
  Country: None (occurrence: None)
  Receive Date: 20110712
  Receipt Date: 20110707
  Transmission Date: 20111222
  Serious: Yes (Hospitalization)
  Sender: FDA-Public Use
  Company Number: DE-SANOFI-AVENTIS-2010SA024632

PATIENT
  Age: 63 Year
  Sex: Male
  Weight: 95 kg

DRUGS (10)
  1. RAMIPRIL [Concomitant]
     Indication: HYPERTENSION
     Route: 048
  2. TORSEMIDE [Concomitant]
     Indication: HYPERTENSION
     Route: 048
  3. PREDNISONE [Concomitant]
     Route: 048
  4. MYFORTIC [Concomitant]
     Route: 048
  5. MULTAQ [Suspect]
     Indication: ATRIAL FIBRILLATION
     Route: 048
     Dates: start: 20100223, end: 20100326
  6. MOXONIDINE [Concomitant]
     Indication: HYPERTENSION
     Route: 048
  7. SANDIMMUNE [Interacting]
     Route: 065
     Dates: start: 20090901, end: 20100401
  8. BISOPROLOL FUMARATE [Concomitant]
     Indication: HYPERTENSION
     Route: 048
  9. TORSEMIDE [Concomitant]
     Route: 048
  10. SANDIMMUNE [Interacting]
     Route: 065
     Dates: start: 20090901, end: 20100401

REACTIONS (4)
  - DRUG INTERACTION [None]
  - IMMUNOSUPPRESSANT DRUG LEVEL INCREASED [None]
  - BLOOD CREATININE INCREASED [None]
  - TOXICITY TO VARIOUS AGENTS [None]
